FAERS Safety Report 17789105 (Version 1)
Quarter: 2020Q2

REPORT INFORMATION
  Report Type: Spontaneous
  Country: PK (occurrence: PK)
  Receive Date: 20200514
  Receipt Date: 20200514
  Transmission Date: 20200714
  Serious: Yes (Other)
  Sender: FDA-Public Use
  Company Number: PK-SA-2019SA273713

PATIENT
  Age: 67 Year
  Sex: Male

DRUGS (2)
  1. DAONIL [Suspect]
     Active Substance: GLYBURIDE
     Indication: HYPERGLYCAEMIA
     Dosage: 5 MG, QD
     Route: 048
     Dates: start: 20180501
  2. METFORMIN HYDROCHLORIDE. [Suspect]
     Active Substance: METFORMIN HYDROCHLORIDE
     Indication: HYPERGLYCAEMIA
     Dosage: 500 MG, QD
     Route: 048
     Dates: start: 20170501

REACTIONS (7)
  - Blood glucose fluctuation [Unknown]
  - Hypoglycaemia [Recovered/Resolved]
  - Constipation [Unknown]
  - Wound complication [Unknown]
  - Wound haemorrhage [Unknown]
  - Neoplasm malignant [Recovered/Resolved]
  - Decreased appetite [Unknown]

NARRATIVE: CASE EVENT DATE: 20180101
